FAERS Safety Report 21625403 (Version 1)
Quarter: 2022Q4

REPORT INFORMATION
  Report Type: Other
  Country: GB (occurrence: GB)
  Receive Date: 20221122
  Receipt Date: 20221122
  Transmission Date: 20230113
  Serious: No
  Sender: FDA-Public Use
  Company Number: None

PATIENT
  Age: 49 Year
  Sex: Male
  Weight: 134.8 kg

DRUGS (9)
  1. SERTRALINE [Suspect]
     Active Substance: SERTRALINE HYDROCHLORIDE
     Indication: Product used for unknown indication
     Dosage: UNK
     Route: 065
  2. ACYCLOVIR [Concomitant]
     Active Substance: ACYCLOVIR
     Indication: Product used for unknown indication
     Dosage: UNK, TAKE ONE 5 TIMES DAILY
     Route: 065
     Dates: start: 20220824
  3. DERMOL 200 [Concomitant]
     Indication: Product used for unknown indication
     Dosage: UNK, QID (APPLY LIBERALLY FOUR TIMES A DAY TO DRY AREAS AND AS A SOAP SUBSTITUTE)
     Route: 065
     Dates: start: 20220831
  4. FLUCLOXACILLIN [Concomitant]
     Active Substance: FLUCLOXACILLIN
     Indication: Product used for unknown indication
     Dosage: 2 DOSAGE FORM, QID (TWO CAPSULES FOUR TIMES A DAY)
     Route: 065
     Dates: start: 20220831
  5. FLUCONAZOLE [Concomitant]
     Active Substance: FLUCONAZOLE
     Indication: Product used for unknown indication
     Dosage: UNK, QD
     Route: 065
     Dates: start: 20220831
  6. HYDROCORTISONE [Concomitant]
     Active Substance: HYDROCORTISONE
     Indication: Product used for unknown indication
     Dosage: UNK, BID (APPLY TWICE A DAY)
     Route: 065
     Dates: start: 20220810
  7. MICONAZOLE [Concomitant]
     Active Substance: MICONAZOLE
     Indication: Product used for unknown indication
     Dosage: UNK, BID (APPLY TWICE A DAY)
     Route: 065
     Dates: start: 20220810
  8. TRIMOVATE [Concomitant]
     Active Substance: CLOBETASONE BUTYRATE\NYSTATIN\OXYTETRACYCLINE CALCIUM
     Indication: Product used for unknown indication
     Dosage: UNK, TID (THREE TIMES A DAY TO AFFECTED AREA FOR UP TO 10 DAYS)
     Route: 065
     Dates: start: 20220824
  9. ZOPICLONE [Concomitant]
     Active Substance: ZOPICLONE
     Indication: Product used for unknown indication
     Dosage: 1 DOSAGE FORM, QD (1 TABLET AT NIGHT)
     Route: 065
     Dates: start: 20221101

REACTIONS (1)
  - Diarrhoea [Recovered/Resolved]

NARRATIVE: CASE EVENT DATE: 20221003
